FAERS Safety Report 5677272-9 (Version None)
Quarter: 2008Q1

REPORT INFORMATION
  Report Type: 
  Country: None (occurrence: None)
  Receive Date: 20080324
  Receipt Date: 20080318
  Transmission Date: 20080703
  Serious: Yes (Hospitalization)
  Sender: FDA-Public Use
  Company Number: US-TEVA-169011USA

PATIENT
  Sex: Male
  Weight: 107.14 kg

DRUGS (5)
  1. FLUOROURACIL [Suspect]
     Indication: COLON CANCER
     Route: 040
     Dates: start: 20080211
  2. FLUOROURACIL [Suspect]
     Route: 042
     Dates: start: 20080211
  3. OXALIPLATIN [Suspect]
     Indication: COLON CANCER
     Route: 042
     Dates: start: 20080211
  4. BEVACIZUMAB [Suspect]
     Indication: COLON CANCER
     Route: 042
     Dates: start: 20080211
  5. PROCHLORPERAZINE EDISYLATE [Concomitant]
     Dates: start: 20080213

REACTIONS (1)
  - PULMONARY EMBOLISM [None]
